FAERS Safety Report 25858951 (Version 1)
Quarter: 2025Q3

REPORT INFORMATION
  Report Type: Spontaneous
  Country: US (occurrence: US)
  Receive Date: 20250929
  Receipt Date: 20250929
  Transmission Date: 20251020
  Serious: No
  Sender: ALEXION PHARMACEUTICALS
  Company Number: US-ASTRAZENECA-202509GLO024218US

PATIENT
  Sex: Male

DRUGS (5)
  1. BUDESONIDE [Suspect]
     Active Substance: BUDESONIDE
     Indication: Asthma
  2. TEZSPIRE [Suspect]
     Active Substance: TEZEPELUMAB-EKKO
     Indication: Asthma
  3. TEZSPIRE [Suspect]
     Active Substance: TEZEPELUMAB-EKKO
  4. SULFAMETHOXAZOLE [Concomitant]
     Active Substance: SULFAMETHOXAZOLE
     Route: 065
  5. TRIMETHOPRIM [Concomitant]
     Active Substance: TRIMETHOPRIM
     Route: 065

REACTIONS (1)
  - Sinusitis [Unknown]
